FAERS Safety Report 8934825 (Version 1)
Quarter: 2012Q4

REPORT INFORMATION
  Report Type: 
  Country: US (occurrence: US)
  Receive Date: 20121129
  Receipt Date: 20121129
  Transmission Date: 20130627
  Serious: No
  Sender: FDA-Public Use
  Company Number: US-BAYER-2012-124545

PATIENT
  Age: 14 Year
  Sex: Female
  Weight: 54.42 kg

DRUGS (2)
  1. ALEVE CAPLET/TABLET,MIDOL EXTENDED RELIEF CAPLET [Suspect]
     Indication: SELF INJURIOUS BEHAVIOUR
     Dosage: UNK DF, UNK
     Route: 048
  2. ALEVE CAPLET/TABLET,MIDOL EXTENDED RELIEF CAPLET [Suspect]
     Indication: SELF INJURIOUS BEHAVIOUR
     Dosage: 8 DF within an hour
     Route: 048

REACTIONS (3)
  - Overdose [None]
  - Off label use [None]
  - Somnolence [Recovered/Resolved]
